FAERS Safety Report 8290107 (Version 12)
Quarter: 2016Q2

REPORT INFORMATION
  Report Type: Spontaneous
  Country: US (occurrence: US)
  Receive Date: 20111214
  Receipt Date: 20160530
  Transmission Date: 20160815
  Serious: Yes (Hospitalization, Congenital Anomaly, Other)
  Sender: FDA-Public Use
  Company Number: US-JNJFOC-20111204756

PATIENT
  Sex: Male
  Weight: 2.96 kg

DRUGS (11)
  1. CYMBALTA [Suspect]
     Active Substance: DULOXETINE HYDROCHLORIDE
     Indication: FOETAL EXPOSURE DURING PREGNANCY
     Route: 064
  2. INDERAL [Suspect]
     Active Substance: PROPRANOLOL HYDROCHLORIDE
     Indication: FOETAL EXPOSURE DURING PREGNANCY
     Route: 064
  3. NITROFURANTOIN. [Suspect]
     Active Substance: NITROFURANTOIN
     Indication: FOETAL EXPOSURE DURING PREGNANCY
     Route: 064
  4. CAMILA [Suspect]
     Active Substance: NORETHINDRONE
     Indication: PRODUCT USED FOR UNKNOWN INDICATION
     Route: 064
  5. PROMETHAZINE [Suspect]
     Active Substance: PROMETHAZINE\PROMETHAZINE HYDROCHLORIDE
     Indication: FOETAL EXPOSURE DURING PREGNANCY
     Route: 064
  6. AZITHROMYCIN ANHYDROUS. [Suspect]
     Active Substance: AZITHROMYCIN ANHYDROUS
     Indication: FOETAL EXPOSURE DURING PREGNANCY
     Route: 065
  7. LORTAB [Suspect]
     Active Substance: ACETAMINOPHEN\HYDROCODONE BITARTRATE
     Indication: FOETAL EXPOSURE DURING PREGNANCY
     Route: 064
  8. AMOX [Suspect]
     Active Substance: UNSPECIFIED INGREDIENT
     Indication: PRODUCT USED FOR UNKNOWN INDICATION
     Route: 064
  9. SULFAMETHOXAZOLE [Suspect]
     Active Substance: SULFAMETHOXAZOLE
     Indication: PRODUCT USED FOR UNKNOWN INDICATION
     Route: 064
  10. FLUCONAZOLE. [Suspect]
     Active Substance: FLUCONAZOLE
     Indication: FOETAL EXPOSURE DURING PREGNANCY
     Route: 064
  11. TOPAMAX [Suspect]
     Active Substance: TOPIRAMATE
     Indication: FOETAL EXPOSURE DURING PREGNANCY
     Route: 064

REACTIONS (15)
  - Atrial septal defect [Unknown]
  - Nose deformity [Recovering/Resolving]
  - Sensory integrative dysfunction [Unknown]
  - Sleep apnoea syndrome [Unknown]
  - Failure to thrive [Unknown]
  - Deafness bilateral [Recovering/Resolving]
  - Cleft lip and palate [Recovering/Resolving]
  - Weight decreased [Recovering/Resolving]
  - Dysphagia [Unknown]
  - Dacryostenosis congenital [Unknown]
  - Inguinal hernia [Recovering/Resolving]
  - Feeding disorder [Recovering/Resolving]
  - Cryptorchism [Unknown]
  - Gastrooesophageal reflux disease [Unknown]
  - Syndactyly [Unknown]
